FAERS Safety Report 16684377 (Version 2)
Quarter: 2019Q3

REPORT INFORMATION
  Report Type: Spontaneous
  Country: CN (occurrence: CN)
  Receive Date: 20190808
  Receipt Date: 20190906
  Transmission Date: 20191004
  Serious: Yes (Other)
  Sender: FDA-Public Use
  Company Number: CN-ASTRAZENECA-2019SF12193

PATIENT
  Age: 89 Year
  Sex: Female

DRUGS (3)
  1. IRESSA [Suspect]
     Active Substance: GEFITINIB
     Indication: NON-SMALL CELL LUNG CANCER
     Dosage: 1.5 TABLETS A TIME IN THE LAST 2 MONTHS
     Route: 048
     Dates: end: 201903
  2. IRESSA [Suspect]
     Active Substance: GEFITINIB
     Indication: NON-SMALL CELL LUNG CANCER
     Route: 048
     Dates: start: 2017, end: 2018
  3. TAGRISSO [Suspect]
     Active Substance: OSIMERTINIB
     Route: 048
     Dates: start: 201903

REACTIONS (4)
  - Drug resistance [Unknown]
  - Rash [Unknown]
  - Abdominal discomfort [Unknown]
  - Malignant neoplasm progression [Unknown]
